FAERS Safety Report 5937302-3 (Version None)
Quarter: 2008Q4

REPORT INFORMATION
  Report Type: 
  Country: None (occurrence: None)
  Receive Date: 20081031
  Receipt Date: 20081028
  Transmission Date: 20090506
  Serious: Yes (Other)
  Sender: FDA-Public Use
  Company Number: US-ASTRAZENECA-2008UW24162

PATIENT
  Age: 78 Year
  Sex: Female

DRUGS (14)
  1. ARIMIDEX [Suspect]
     Route: 048
     Dates: start: 20080101
  2. PROTONIX [Concomitant]
  3. SIMVASTATIN [Concomitant]
  4. PLAVIX [Concomitant]
  5. FERROUS SULFATE [Concomitant]
  6. ISOSORBIDE [Concomitant]
  7. GLYBURIDE [Concomitant]
  8. SPIRONOLACTONE [Concomitant]
  9. LASIX [Concomitant]
  10. COUMADIN [Concomitant]
  11. PRISTIQ [Concomitant]
  12. ALPRAZOLAM [Concomitant]
  13. LABETOLOL [Concomitant]
  14. KLOR-CON [Concomitant]

REACTIONS (5)
  - BACK PAIN [None]
  - FAECES DISCOLOURED [None]
  - HEADACHE [None]
  - PAIN IN EXTREMITY [None]
  - ULCER HAEMORRHAGE [None]
